FAERS Safety Report 21692639 (Version 1)
Quarter: 2022Q4

REPORT INFORMATION
  Report Type: Spontaneous
  Country: US (occurrence: None)
  Receive Date: 20221207
  Receipt Date: 20221207
  Transmission Date: 20230113
  Serious: No
  Sender: FDA-Public Use
  Company Number: US-Encube-000236

PATIENT
  Age: 66 Year
  Sex: Male

DRUGS (1)
  1. TAVABOROLE [Suspect]
     Active Substance: TAVABOROLE
     Indication: Product used for unknown indication
     Dosage: 10ML SOLUTION

REACTIONS (3)
  - Accidental exposure to product [Unknown]
  - Limb injury [Unknown]
  - Product package associated injury [Unknown]

NARRATIVE: CASE EVENT DATE: 20221101
